FAERS Safety Report 7828996-6 (Version None)
Quarter: 2011Q4

REPORT INFORMATION
  Report Type: 
  Country: None (occurrence: None)
  Receive Date: 20111020
  Receipt Date: 20111011
  Transmission Date: 20120403
  Serious: Yes (Hospitalization, Other)
  Sender: FDA-Public Use
  Company Number: CO-ELI_LILLY_AND_COMPANY-CO201110003101

PATIENT
  Age: 81 Year
  Sex: Male

DRUGS (2)
  1. BYETTA [Suspect]
     Indication: TYPE 2 DIABETES MELLITUS
     Dosage: 5 UG, BID
     Route: 058
     Dates: start: 20110820, end: 20110919
  2. BYETTA [Suspect]
     Dosage: 10 UG, UNK
     Dates: start: 20110920, end: 20111003

REACTIONS (13)
  - PYREXIA [None]
  - DEPRESSED MOOD [None]
  - NAUSEA [None]
  - JAUNDICE [None]
  - VOMITING [None]
  - DECREASED APPETITE [None]
  - CHILLS [None]
  - HAEMATURIA [None]
  - RENAL FUNCTION TEST ABNORMAL [None]
  - ABDOMINAL PAIN [None]
  - LIVER FUNCTION TEST ABNORMAL [None]
  - DISCOMFORT [None]
  - DIZZINESS [None]
